FAERS Safety Report 6067111-9 (Version None)
Quarter: 2009Q1

REPORT INFORMATION
  Report Type: 
  Country: None (occurrence: None)
  Receive Date: 20090204
  Receipt Date: 20090204
  Transmission Date: 20090719
  Serious: No
  Sender: FDA-Public Use
  Company Number: None

PATIENT
  Age: 33 Year
  Sex: Female
  Weight: 70.3075 kg

DRUGS (2)
  1. FLAGYL [Suspect]
     Indication: ABSCESS
     Dosage: 250 MG 3 X DAILY- PO
     Route: 048
     Dates: start: 20081201, end: 20090202
  2. FLAGYL [Suspect]
     Indication: FISTULA
     Dosage: 250 MG 3 X DAILY- PO
     Route: 048
     Dates: start: 20081201, end: 20090202

REACTIONS (3)
  - HYPOAESTHESIA [None]
  - NEUROPATHY PERIPHERAL [None]
  - PARAESTHESIA [None]
